FAERS Safety Report 17074970 (Version 2)
Quarter: 2019Q4

REPORT INFORMATION
  Report Type: Spontaneous
  Country: NL (occurrence: NL)
  Receive Date: 20191126
  Receipt Date: 20191213
  Transmission Date: 20200122
  Serious: No
  Sender: FDA-Public Use
  Company Number: NL-PFIZER INC-2016546406

PATIENT
  Age: 38 Year
  Sex: Female

DRUGS (3)
  1. SOMAVERT [Suspect]
     Active Substance: PEGVISOMANT
     Indication: PITUITARY TUMOUR
     Dosage: 80 MG, 1X/WEEK
     Route: 058
  2. SOMAVERT [Suspect]
     Active Substance: PEGVISOMANT
     Indication: ACROMEGALY
     Dosage: 60 MG, 1X/WEEK
     Route: 058
     Dates: start: 20161124
  3. SOMAVERT [Suspect]
     Active Substance: PEGVISOMANT
     Dosage: 60 MG, 2X/WEEK
     Route: 058

REACTIONS (2)
  - Product use issue [Unknown]
  - Off label use [Unknown]
